FAERS Safety Report 18014693 (Version 1)
Quarter: 2020Q3

REPORT INFORMATION
  Report Type: Spontaneous
  Country: US (occurrence: US)
  Receive Date: 20200713
  Receipt Date: 20200713
  Transmission Date: 20201103
  Serious: Yes (Other)
  Sender: FDA-Public Use
  Company Number: None

PATIENT
  Age: 90 Year
  Sex: Male
  Weight: 93.4 kg

DRUGS (5)
  1. PRECEDEX [Concomitant]
     Active Substance: DEXMEDETOMIDINE HYDROCHLORIDE
     Dates: start: 20130628, end: 20200713
  2. LEVOPHED [Concomitant]
     Active Substance: NOREPINEPHRINE BITARTRATE
     Dates: start: 20200706, end: 20200710
  3. REMDESIVIR. [Suspect]
     Active Substance: REMDESIVIR
  4. FENTANYL. [Concomitant]
     Active Substance: FENTANYL
     Dates: start: 20200704, end: 20200710
  5. PROPOFOL. [Concomitant]
     Active Substance: PROPOFOL
     Dates: start: 20200704, end: 20200710

REACTIONS (1)
  - Bradycardia [None]
